FAERS Safety Report 9927730 (Version 1)
Quarter: 2014Q1

REPORT INFORMATION
  Report Type: Spontaneous
  Country: US (occurrence: US)
  Receive Date: 20140227
  Receipt Date: 20140227
  Transmission Date: 20141002
  Serious: Yes (Other)
  Sender: FDA-Public Use
  Company Number: US-ABBVIE-14P-163-1205317-00

PATIENT
  Age: 20 Year
  Sex: Male

DRUGS (2)
  1. DEPAKOTE ER [Suspect]
     Indication: CONVULSION
     Dates: start: 1996, end: 20140201
  2. DIVALPROEX SODIUM [Suspect]
     Indication: CONVULSION
     Dates: start: 20140201

REACTIONS (3)
  - Scoliosis [Recovered/Resolved]
  - Convulsion [Recovered/Resolved]
  - Back pain [Unknown]
